FAERS Safety Report 6753754-3 (Version None)
Quarter: 2010Q2

REPORT INFORMATION
  Report Type: 
  Country: None (occurrence: None)
  Receive Date: 20100603
  Receipt Date: 20100528
  Transmission Date: 20101027
  Serious: Yes (Life-Threatening, Hospitalization)
  Sender: FDA-Public Use
  Company Number: NL-ROCHE-706537

PATIENT
  Sex: Male

DRUGS (8)
  1. BEVACIZUMAB [Suspect]
     Indication: COLORECTAL CANCER
     Dosage: LAST DOSE PRIOR TO SAE: 08 APRIL 2010.
     Route: 042
     Dates: start: 20081122
  2. ACENOCOUMAROL [Concomitant]
  3. ASCAL [Concomitant]
  4. BECLOMETASON [Concomitant]
     Dosage: REPORTED AS: 2 X 400
  5. CODEINE SULFATE [Concomitant]
  6. SELOKEEN [Concomitant]
     Dosage: REPORTED AS: 2 X 50 MG
  7. CORDARONE [Concomitant]
  8. CORDARONE [Concomitant]
     Route: 042

REACTIONS (1)
  - VENTRICULAR TACHYCARDIA [None]
